FAERS Safety Report 13166082 (Version 1)
Quarter: 2017Q1

REPORT INFORMATION
  Report Type: Report from Study
  Country: JP (occurrence: JP)
  Receive Date: 20170131
  Receipt Date: 20170131
  Transmission Date: 20170428
  Serious: Yes (Death, Other)
  Sender: FDA-Public Use
  Company Number: JP-ROCHE-1884197

PATIENT

DRUGS (16)
  1. RITUXIMAB [Suspect]
     Active Substance: RITUXIMAB
     Indication: CONNECTIVE TISSUE DISORDER
     Route: 065
  2. TOCILIZUMAB [Suspect]
     Active Substance: TOCILIZUMAB
     Indication: CONNECTIVE TISSUE DISORDER
     Route: 065
  3. CYCLOSPORIN [Suspect]
     Active Substance: CYCLOSPORINE
     Indication: CONNECTIVE TISSUE DISORDER
     Route: 065
  4. METHOTREXATE. [Suspect]
     Active Substance: METHOTREXATE
     Indication: CONNECTIVE TISSUE DISORDER
     Route: 065
  5. LEFLUNOMIDE. [Suspect]
     Active Substance: LEFLUNOMIDE
     Indication: CONNECTIVE TISSUE DISORDER
     Route: 065
  6. ABATACEPT [Suspect]
     Active Substance: ABATACEPT
     Indication: CONNECTIVE TISSUE DISORDER
     Route: 065
  7. ADALIMUMAB [Suspect]
     Active Substance: ADALIMUMAB
     Indication: CONNECTIVE TISSUE DISORDER
     Route: 065
  8. AZATHIOPRINE. [Suspect]
     Active Substance: AZATHIOPRINE
     Indication: CONNECTIVE TISSUE DISORDER
     Route: 065
  9. INFLIXIMAB [Suspect]
     Active Substance: INFLIXIMAB
     Indication: CONNECTIVE TISSUE DISORDER
     Route: 065
  10. MYCOPHENOLATE MOFETIL. [Suspect]
     Active Substance: MYCOPHENOLATE MOFETIL
     Indication: CONNECTIVE TISSUE DISORDER
     Route: 065
  11. METHYL PREDNISOLONE SODIUM SUCCINATE [Suspect]
     Active Substance: METHYLPREDNISOLONE SODIUM SUCCINATE
     Indication: CONNECTIVE TISSUE DISORDER
     Route: 065
  12. TACROLIMUS. [Suspect]
     Active Substance: TACROLIMUS
     Indication: CONNECTIVE TISSUE DISORDER
     Route: 065
  13. PREDNISOLONE. [Suspect]
     Active Substance: PREDNISOLONE
     Indication: CONNECTIVE TISSUE DISORDER
     Route: 065
  14. CYCLOPHOSPHAMIDE. [Suspect]
     Active Substance: CYCLOPHOSPHAMIDE
     Indication: CONNECTIVE TISSUE DISORDER
     Route: 065
  15. MIZORIBINE [Suspect]
     Active Substance: MIZORIBINE
     Indication: CONNECTIVE TISSUE DISORDER
     Route: 065
  16. ETANERCEPT [Suspect]
     Active Substance: ETANERCEPT
     Indication: CONNECTIVE TISSUE DISORDER
     Route: 065

REACTIONS (12)
  - Pneumonia fungal [Unknown]
  - Interstitial lung disease [Fatal]
  - Bacterial infection [Unknown]
  - Pneumonia bacterial [Unknown]
  - Sepsis [Fatal]
  - Pneumonia [Fatal]
  - Pneumonia cytomegaloviral [Unknown]
  - Pulmonary tuberculosis [Unknown]
  - Infectious pleural effusion [Unknown]
  - Pneumocystis jirovecii pneumonia [Unknown]
  - Second primary malignancy [Fatal]
  - Fungal infection [Unknown]
